FAERS Safety Report 17591698 (Version 4)
Quarter: 2020Q2

REPORT INFORMATION
  Report Type: Spontaneous
  Country: GB (occurrence: GB)
  Receive Date: 20200327
  Receipt Date: 20200504
  Transmission Date: 20200713
  Serious: Yes (Other)
  Sender: FDA-Public Use
  Company Number: GB-AUROBINDO-AUR-APL-2020-015058

PATIENT
  Age: 66 Year
  Sex: Male
  Weight: 70 kg

DRUGS (1)
  1. FINASTERIDE 5 MG FILM COATED TABLETS [Suspect]
     Active Substance: FINASTERIDE
     Indication: PROSTATOMEGALY
     Dosage: 1 DOSAGE FORM, DAILY (TOTAL DAILY DOSE 5 MG)
     Route: 048
     Dates: start: 20200216, end: 20200307

REACTIONS (16)
  - Musculoskeletal pain [Unknown]
  - Neck pain [Recovering/Resolving]
  - Ocular discomfort [Recovering/Resolving]
  - Headache [Recovering/Resolving]
  - Limb discomfort [Unknown]
  - Influenza like illness [Recovered/Resolved]
  - Facial paralysis [Recovering/Resolving]
  - Facial pain [Recovering/Resolving]
  - Lacrimation increased [Recovering/Resolving]
  - Oral discomfort [Recovering/Resolving]
  - Lagophthalmos [Recovering/Resolving]
  - Palpitations [Unknown]
  - Eye disorder [Recovering/Resolving]
  - Hypoaesthesia [Recovering/Resolving]
  - Head discomfort [Recovering/Resolving]
  - Pyrexia [Recovering/Resolving]

NARRATIVE: CASE EVENT DATE: 20200305
